FAERS Safety Report 8901894 (Version 1)
Quarter: 2012Q4

REPORT INFORMATION
  Report Type: Spontaneous
  Country: US (occurrence: None)
  Receive Date: 20121109
  Receipt Date: 20121109
  Transmission Date: 20130627
  Serious: Yes (Hospitalization)
  Sender: FDA-Public Use
  Company Number: None

PATIENT
  Sex: Female
  Weight: 38.5 kg

DRUGS (5)
  1. CYCLOPHOSPHAMIDE [Suspect]
  2. DOXORUBICIN HYDROCHLORIDE [Suspect]
  3. ETOPOSIDE [Suspect]
  4. IFOSFAMIDE [Suspect]
  5. VINCRISTINE SULFATE [Suspect]

REACTIONS (3)
  - Pancytopenia [None]
  - Myelodysplastic syndrome [None]
  - Cytogenetic abnormality [None]
